FAERS Safety Report 6960508-1 (Version None)
Quarter: 2010Q3

REPORT INFORMATION
  Report Type: 
  Country: None (occurrence: None)
  Receive Date: 20100820
  Receipt Date: 20100604
  Transmission Date: 20110219
  Serious: Yes (Other)
  Sender: FDA-Public Use
  Company Number: PIR# 1006022-B

PATIENT
  Age: 56 Year
  Sex: Female

DRUGS (1)
  1. BALANCED SALT [Suspect]

REACTIONS (1)
  - TOXIC ANTERIOR SEGMENT SYNDROME [None]
